FAERS Safety Report 6520317-4 (Version None)
Quarter: 2009Q4

REPORT INFORMATION
  Report Type: 
  Country: None (occurrence: None)
  Receive Date: 20091229
  Receipt Date: 20091216
  Transmission Date: 20100525
  Serious: Yes (Life-Threatening, Hospitalization, Other)
  Sender: FDA-Public Use
  Company Number: US-JNJFOC-20080300261

PATIENT
  Sex: Female
  Weight: 49.9 kg

DRUGS (17)
  1. REMICADE [Suspect]
     Indication: RHEUMATOID ARTHRITIS
     Dosage: TOTAL OF 18 INFUSIONS
     Route: 042
  2. ACETAMINOPHEN [Suspect]
  3. ACETAMINOPHEN [Suspect]
     Indication: DRUG USE FOR UNKNOWN INDICATION
  4. METHOTREXATE [Concomitant]
     Indication: RHEUMATOID ARTHRITIS
  5. FOLIC ACID [Concomitant]
     Indication: NUTRITIONAL SUPPORT
  6. FUROSEMIDE [Concomitant]
  7. HYDROCODONE [Concomitant]
     Indication: PAIN
  8. ALBUTEROL [Concomitant]
  9. SPIRIVA [Concomitant]
  10. ZOCOR [Concomitant]
  11. TOPROL-XL [Concomitant]
  12. PULMICORT [Concomitant]
  13. COUMADIN [Concomitant]
  14. MAGNESIUM [Concomitant]
  15. CALCIUM [Concomitant]
  16. FOSAMAX [Concomitant]
  17. ATACAND [Concomitant]

REACTIONS (9)
  - ATRIAL FIBRILLATION [None]
  - INSOMNIA [None]
  - NON-HODGKIN'S LYMPHOMA [None]
  - NUTRITIONAL CONDITION ABNORMAL [None]
  - PERIPHERAL VASCULAR DISORDER [None]
  - SKIN DISORDER [None]
  - SKIN ULCER [None]
  - TRANSAMINASES INCREASED [None]
  - WOUND INFECTION STAPHYLOCOCCAL [None]
